FAERS Safety Report 6338377-2 (Version None)
Quarter: 2009Q3

REPORT INFORMATION
  Report Type: 
  Country: None (occurrence: None)
  Receive Date: 20090901
  Receipt Date: 20090826
  Transmission Date: 20100115
  Serious: Yes (Hospitalization)
  Sender: FDA-Public Use
  Company Number: 2009AL005633

PATIENT
  Age: 61 Year
  Sex: Female

DRUGS (6)
  1. AMANTADINE HCL [Suspect]
     Indication: DYSTONIA
     Dosage: 100 MG; BID;
  2. TIZANIDINE HCL [Suspect]
  3. DIAZEPAM [Suspect]
     Dosage: 2.5 MG; QD;
  4. ESCITALOPRAM [Concomitant]
  5. ROSUVASTATIN CALCIUM [Concomitant]
  6. BUPROPION HCL [Concomitant]

REACTIONS (15)
  - AUTONOMIC NERVOUS SYSTEM IMBALANCE [None]
  - BLOOD PRESSURE INADEQUATELY CONTROLLED [None]
  - DRUG WITHDRAWAL SYNDROME [None]
  - FALL [None]
  - FLUSHING [None]
  - HYPERREFLEXIA [None]
  - HYPERSENSITIVITY [None]
  - MENTAL STATUS CHANGES [None]
  - MUSCLE RIGIDITY [None]
  - NAUSEA [None]
  - NEUROLEPTIC MALIGNANT SYNDROME [None]
  - OEDEMA PERIPHERAL [None]
  - PYREXIA [None]
  - SINUS TACHYCARDIA [None]
  - TREMOR [None]
